FAERS Safety Report 5830440-5 (Version None)
Quarter: 2008Q3

REPORT INFORMATION
  Report Type: 
  Country: None (occurrence: None)
  Receive Date: 20080801
  Receipt Date: 20080723
  Transmission Date: 20090109
  Serious: Yes (Other)
  Sender: FDA-Public Use
  Company Number: US-WYE-H05198008

PATIENT
  Sex: Female

DRUGS (2)
  1. TORISEL [Suspect]
     Indication: RENAL CELL CARCINOMA
     Dosage: 20 Q WEEK
  2. TORISEL [Suspect]
     Dosage: UNKNOWN DOSE AT UNSPECIFIED FREQUENCY

REACTIONS (2)
  - HYPONATRAEMIA [None]
  - RENAL FAILURE [None]
